FAERS Safety Report 10253071 (Version 5)
Quarter: 2015Q1

REPORT INFORMATION
  Report Type: Report from Study
  Country: JP (occurrence: JP)
  Receive Date: 20140623
  Receipt Date: 20150209
  Transmission Date: 20150720
  Serious: Yes (Death)
  Sender: FDA-Public Use
  Company Number: JP-PFIZER INC-2014167462

PATIENT
  Age: 52 Year
  Sex: Female
  Weight: 58.6 kg

DRUGS (4)
  1. POSTERISAN [Concomitant]
     Active Substance: LIDOCAINE
     Dosage: 2 G, AS NEEDED
     Route: 062
     Dates: start: 20120711
  2. XALKORI [Suspect]
     Active Substance: CRIZOTINIB
     Indication: NON-SMALL CELL LUNG CANCER
     Dosage: 250 MG, 2X/DAY
     Route: 048
     Dates: start: 20120710, end: 20130709
  3. LOPEMIN [Concomitant]
     Active Substance: LOPERAMIDE HYDROCHLORIDE
     Dosage: 1 MG, AS NEEDED
     Route: 048
     Dates: start: 20120714
  4. GASTER [Concomitant]
     Active Substance: FAMOTIDINE
     Dosage: 20 MG, 2X/DAY
     Route: 048
     Dates: start: 20130115

REACTIONS (1)
  - Posterior reversible encephalopathy syndrome [Fatal]
